FAERS Safety Report 8020255-4 (Version None)
Quarter: 2012Q1

REPORT INFORMATION
  Report Type: 
  Country: None (occurrence: None)
  Receive Date: 20120103
  Receipt Date: 20111219
  Transmission Date: 20120608
  Serious: Yes (Death, Other)
  Sender: FDA-Public Use
  Company Number: US-UCBSA-048350

PATIENT
  Age: 73 Year
  Sex: Female

DRUGS (6)
  1. OMEPRAZOLE [Suspect]
  2. HYDROXYZINE [Suspect]
  3. GABAPENTIN [Suspect]
  4. METOPROLOL TARTRATE [Suspect]
  5. SERTRALINE HYDROCHLORIDE [Suspect]
  6. PHENYTOIN [Suspect]

REACTIONS (1)
  - DEATH [None]
